FAERS Safety Report 10151632 (Version 1)
Quarter: 2014Q2

REPORT INFORMATION
  Report Type: Report from Study
  Country: FR (occurrence: FR)
  Receive Date: 20140505
  Receipt Date: 20140505
  Transmission Date: 20141212
  Serious: Yes (Hospitalization)
  Sender: FDA-Public Use
  Company Number: FR-ROCHE-1392291

PATIENT
  Sex: Female

DRUGS (11)
  1. RITUXIMAB [Suspect]
     Indication: RHEUMATOID ARTHRITIS
     Route: 065
     Dates: start: 20070614
  2. RITUXIMAB [Suspect]
     Route: 065
  3. HYDROXYCHLOROQUINE [Concomitant]
  4. SALAZOPYRINE [Concomitant]
     Route: 065
  5. SALAZOPYRINE [Concomitant]
     Route: 065
  6. METHOTREXATE [Concomitant]
  7. CORTANCYL [Concomitant]
     Route: 065
  8. CORTANCYL [Concomitant]
     Route: 065
  9. CORTANCYL [Concomitant]
     Route: 065
  10. METHYLPREDNISOLONE [Concomitant]
  11. PARACETAMOL [Concomitant]

REACTIONS (13)
  - Transient ischaemic attack [Recovered/Resolved]
  - Hypertension [Recovered/Resolved]
  - Carotid artery stenosis [Recovered/Resolved]
  - Coronary arterial stent insertion [Recovered/Resolved]
  - Coronary angioplasty [Recovered/Resolved]
  - Cystitis escherichia [Not Recovered/Not Resolved]
  - Tremor [Recovered/Resolved]
  - Pyelonephritis [Recovered/Resolved]
  - Paraesthesia [Not Recovered/Not Resolved]
  - Infusion related reaction [Recovered/Resolved]
  - Vitiligo [Not Recovered/Not Resolved]
  - Alpha 2 globulin abnormal [Unknown]
  - Osteoarthritis [Unknown]
